FAERS Safety Report 5790932-4 (Version None)
Quarter: 2008Q2

REPORT INFORMATION
  Report Type: 
  Country: None (occurrence: None)
  Receive Date: 20080626
  Receipt Date: 20080512
  Transmission Date: 20081010
  Serious: No
  Sender: FDA-Public Use
  Company Number: A0727383A

PATIENT
  Sex: Female

DRUGS (2)
  1. ALLI [Suspect]
     Indication: CONSTIPATION
  2. KONSYL [Concomitant]

REACTIONS (7)
  - CHROMATURIA [None]
  - DIARRHOEA [None]
  - FEMALE GENITAL TRACT FISTULA [None]
  - FISTULA [None]
  - FREQUENT BOWEL MOVEMENTS [None]
  - OFF LABEL USE [None]
  - URINARY TRACT INFECTION [None]
